FAERS Safety Report 5502966-5 (Version None)
Quarter: 2007Q4

REPORT INFORMATION
  Report Type: 
  Country: None (occurrence: None)
  Receive Date: 20071031
  Receipt Date: 20071022
  Transmission Date: 20080405
  Serious: Yes (Hospitalization, Other)
  Sender: FDA-Public Use
  Company Number: PHEH2007US12713

PATIENT
  Age: 63 Year
  Sex: Female

DRUGS (13)
  1. ZELNORM [Suspect]
     Indication: CONSTIPATION
     Dosage: 6 MG, BID
     Route: 048
  2. NEXIUM [Concomitant]
     Dosage: 40 MG, QD
  3. MOTRIN [Concomitant]
     Indication: INFLAMMATION
     Dosage: 800 MG TID PRN
  4. TRANXENE [Concomitant]
     Indication: STRESS
     Dosage: 300 MG TID PRN
  5. FOLIC ACID [Concomitant]
  6. SYNTHROID [Concomitant]
     Dosage: 0.1 MG, QD
  7. VITAMIN E [Concomitant]
  8. VITAMIN B6 [Concomitant]
  9. CALCIUM WITH VITAMIN D [Concomitant]
  10. GLUCOSAMINE [Concomitant]
  11. ASCORBIC ACID [Concomitant]
  12. CENTRUM SILVER [Concomitant]
  13. LASIX [Concomitant]
     Indication: OEDEMA
     Dosage: 40 MG QAM PRN

REACTIONS (5)
  - CHEST PAIN [None]
  - DYSPNOEA [None]
  - ERUCTATION [None]
  - PAIN IN EXTREMITY [None]
  - REFLUX OESOPHAGITIS [None]
